FAERS Safety Report 16114836 (Version 1)
Quarter: 2019Q1

REPORT INFORMATION
  Report Type: Spontaneous
  Country: FR (occurrence: FR)
  Receive Date: 20190325
  Receipt Date: 20190325
  Transmission Date: 20190418
  Serious: Yes (Hospitalization)
  Sender: FDA-Public Use
  Company Number: FR-INDIVIOR LIMITED-INDV-118407-2019

PATIENT
  Age: 37 Year
  Sex: Male
  Weight: 88 kg

DRUGS (1)
  1. SUBUTEX [Suspect]
     Active Substance: BUPRENORPHINE HYDROCHLORIDE
     Indication: PRODUCT USED FOR UNKNOWN INDICATION
     Dosage: UNK
     Route: 042
     Dates: start: 1999

REACTIONS (4)
  - Intentional product misuse [Unknown]
  - Intentional product use issue [Unknown]
  - Erysipelas [Recovered/Resolved]
  - Vascular access site rupture [Recovered/Resolved]

NARRATIVE: CASE EVENT DATE: 1999
